FAERS Safety Report 9163440 (Version 2)
Quarter: 2014Q2

REPORT INFORMATION
  Report Type: Report from Study
  Country: US (occurrence: US)
  Receive Date: 20130314
  Receipt Date: 20140423
  Transmission Date: 20141212
  Serious: Yes (Other)
  Sender: FDA-Public Use
  Company Number: US-ROCHE-GNE262184

PATIENT
  Sex: Female

DRUGS (8)
  1. OMALIZUMAB [Suspect]
     Indication: ASTHMA
     Dosage: UNK, Q4W
     Route: 065
  2. ZYRTEC [Concomitant]
     Indication: HYPERSENSITIVITY
  3. IMMUNOTHERAPY (ANTIGEN UNKNOWN) [Concomitant]
     Indication: HYPERSENSITIVITY
  4. CALCIUM [Concomitant]
     Indication: NUTRITIONAL SUPPLEMENTATION
  5. PRENATAL VITAMINS [Concomitant]
     Indication: PREGNANCY
  6. PROVENTIL [Concomitant]
     Indication: ASTHMA
  7. EPIPEN [Concomitant]
     Indication: HYPERSENSITIVITY
  8. BENADRYL (UNITED STATES) [Concomitant]
     Indication: HYPERSENSITIVITY

REACTIONS (2)
  - Abortion spontaneous [Recovered/Resolved]
  - Exposure during pregnancy [Unknown]
